FAERS Safety Report 21732459 (Version 1)
Quarter: 2022Q4

REPORT INFORMATION
  Report Type: Spontaneous
  Country: CZ (occurrence: CZ)
  Receive Date: 20221215
  Receipt Date: 20221215
  Transmission Date: 20230113
  Serious: Yes (Death, Hospitalization)
  Sender: FDA-Public Use
  Company Number: CZ-ABBVIE-4232102

PATIENT
  Age: 44 Year
  Sex: Female

DRUGS (3)
  1. CLARITHROMYCIN [Suspect]
     Active Substance: CLARITHROMYCIN
     Indication: Bronchitis
     Route: 048
     Dates: start: 2020, end: 2020
  2. SUNITINIB [Suspect]
     Active Substance: SUNITINIB
     Indication: Renal cell carcinoma
     Dosage: STARTED IN SEP 2017 AND DISCONTINUED IN 2017
     Route: 048
     Dates: start: 201709
  3. SUNITINIB [Suspect]
     Active Substance: SUNITINIB
     Indication: Renal cell carcinoma
     Dosage: STARTED IN 2017 AND DISCONTINUED IN 2020
     Route: 048

REACTIONS (2)
  - Acute hepatic failure [Fatal]
  - Drug interaction [Fatal]

NARRATIVE: CASE EVENT DATE: 20200101
